FAERS Safety Report 10739755 (Version 1)
Quarter: 2015Q1

REPORT INFORMATION
  Report Type: Spontaneous
  Country: US (occurrence: US)
  Receive Date: 20150127
  Receipt Date: 20150127
  Transmission Date: 20150721
  Serious: Yes (Life-Threatening, Hospitalization)
  Sender: FDA-Public Use
  Company Number: US-JNJFOC-20150111519

PATIENT
  Age: 32 Year
  Sex: Female

DRUGS (2)
  1. APAP [Suspect]
     Active Substance: ACETAMINOPHEN
     Route: 048
  2. APAP [Suspect]
     Active Substance: ACETAMINOPHEN
     Indication: BACK PAIN
     Dosage: 8 TO 10 GRAMS DAILY
     Route: 048
     Dates: start: 200808

REACTIONS (3)
  - Accidental overdose [Unknown]
  - Hepatic failure [Unknown]
  - Encephalopathy [Unknown]

NARRATIVE: CASE EVENT DATE: 200808
